FAERS Safety Report 9409617 (Version 2)
Quarter: 2014Q1

REPORT INFORMATION
  Report Type: Report from Study
  Country: FR (occurrence: FR)
  Receive Date: 20130719
  Receipt Date: 20140325
  Transmission Date: 20141002
  Serious: Yes (Other)
  Sender: FDA-Public Use
  Company Number: PHHO2013FR009278

PATIENT
  Age: 41 Year
  Sex: Male

DRUGS (4)
  1. NEORAL [Suspect]
     Indication: RENAL TRANSPLANT
     Dosage: UNK
     Dates: start: 20120615
  2. SIMULECT [Suspect]
     Indication: RENAL TRANSPLANT
  3. COLCHICINE [Suspect]
  4. CERTICAN [Concomitant]
     Indication: RENAL TRANSPLANT

REACTIONS (1)
  - Rhabdomyolysis [Unknown]
